FAERS Safety Report 6424849-9 (Version None)
Quarter: 2009Q4

REPORT INFORMATION
  Report Type: 
  Country: None (occurrence: None)
  Receive Date: 20091029
  Receipt Date: 20091015
  Transmission Date: 20100525
  Serious: Yes (Death)
  Sender: FDA-Public Use
  Company Number: 20090475

PATIENT
  Age: 53 Year
  Sex: Male

DRUGS (2)
  1. CEFTRIAXONE [Suspect]
     Dosage: INJECTION NOS
  2. AZITHROMYCIN [Suspect]

REACTIONS (3)
  - HEPATIC FAILURE [None]
  - HEPATOCELLULAR INJURY [None]
  - LIVER INJURY [None]
